FAERS Safety Report 20704642 (Version 1)
Quarter: 2022Q2

REPORT INFORMATION
  Report Type: Spontaneous
  Country: US (occurrence: None)
  Receive Date: 20220412
  Receipt Date: 20220412
  Transmission Date: 20220721
  Serious: Yes (Other)
  Sender: FDA-Public Use
  Company Number: None

PATIENT
  Age: 28 Year
  Sex: Female
  Weight: 143.1 kg

DRUGS (4)
  1. VICKS VAPOCOOL SORE THROAT [Suspect]
     Active Substance: BENZOCAINE\MENTHOL
     Indication: Oropharyngeal pain
     Dosage: FREQUENCY : 3 TIMES A DAY;?
     Route: 048
     Dates: start: 20220108, end: 20220109
  2. LISINOPRIL [Concomitant]
  3. FERROUS SULFATE [Concomitant]
  4. VITAMIN D [Concomitant]
     Active Substance: VITAMIN D NOS

REACTIONS (4)
  - Hypoaesthesia oral [None]
  - Lip swelling [None]
  - Lip pruritus [None]
  - Lip discolouration [None]

NARRATIVE: CASE EVENT DATE: 20220108
